FAERS Safety Report 9220957 (Version 1)
Quarter: 2013Q2

REPORT INFORMATION
  Report Type: Report from Study
  Country: ES (occurrence: ES)
  Receive Date: 20130409
  Receipt Date: 20130409
  Transmission Date: 20140414
  Serious: Yes (Death)
  Sender: FDA-Public Use
  Company Number: ES-GLAXOSMITHKLINE-B0881279A

PATIENT
  Age: 71 Year
  Sex: Female

DRUGS (6)
  1. SEROXAT [Suspect]
     Indication: DEPRESSION
     Route: 048
     Dates: start: 201105, end: 20121005
  2. ALDOCUMAR [Suspect]
     Indication: ATRIAL FIBRILLATION
     Route: 048
     Dates: start: 201105, end: 20121005
  3. ATORVASTATIN [Suspect]
     Indication: HYPERLIPIDAEMIA
     Dosage: 10MG PER DAY
     Route: 048
     Dates: start: 2009, end: 20121005
  4. SUTRIL [Concomitant]
     Indication: HYPERTENSION
     Dosage: 5MG PER DAY
     Route: 048
     Dates: start: 20120905, end: 20121005
  5. LOSARTAN [Concomitant]
     Indication: HYPERTENSION
     Dosage: 25MG PER DAY
     Route: 048
     Dates: start: 201206, end: 20121005
  6. OMEPRAZOL [Concomitant]
     Indication: PROPHYLAXIS
     Dosage: 20MG PER DAY
     Route: 048
     Dates: start: 201106, end: 20121005

REACTIONS (1)
  - Haemorrhage intracranial [Fatal]
